FAERS Safety Report 8807253 (Version 1)
Quarter: 2012Q4

REPORT INFORMATION
  Report Type: Report from Study
  Country: US (occurrence: US)
  Receive Date: 20120925
  Receipt Date: 20120925
  Transmission Date: 20130627
  Serious: Yes (Other)
  Sender: FDA-Public Use
  Company Number: US-ABBOTT-12P-163-0980766-00

PATIENT
  Age: 29 None
  Sex: Female

DRUGS (2)
  1. LUPRON DEPOT [Suspect]
     Indication: GENITAL DISORDER FEMALE
     Dates: start: 20111006, end: 2012
  2. LUPRON DEPOT [Suspect]
     Indication: PELVIC PAIN

REACTIONS (4)
  - Hysterectomy [Unknown]
  - Laparoscopy [Unknown]
  - Drug ineffective [Unknown]
  - Endometriosis [Unknown]
